FAERS Safety Report 9072382 (Version 1)
Quarter: 2013Q1

REPORT INFORMATION
  Report Type: Spontaneous
  Country: US (occurrence: US)
  Receive Date: 20130207
  Receipt Date: 20130207
  Transmission Date: 20140127
  Serious: No
  Sender: FDA-Public Use
  Company Number: US-PFIZER INC-2013049068

PATIENT
  Age: 46 Year
  Sex: Female
  Weight: 71.2 kg

DRUGS (6)
  1. PREMARIN [Suspect]
     Indication: HORMONE REPLACEMENT THERAPY
     Dosage: 0.9 MG, DAILY
     Route: 048
     Dates: start: 2000
  2. PREMARIN [Suspect]
     Indication: HOT FLUSH
     Dosage: 0.625 MG, DAILY
     Route: 048
     Dates: start: 2007
  3. PREMARIN [Suspect]
     Indication: AFFECTIVE DISORDER
  4. LYRICA [Suspect]
     Indication: FIBROMYALGIA
     Dosage: 225 MG, 2X/DAY
     Route: 048
     Dates: start: 2006
  5. LYRICA [Suspect]
     Dosage: 75 MG, 2X/DAY
     Route: 048
     Dates: start: 2008
  6. LYRICA [Suspect]
     Dosage: 125 MG, 2X/DAY
     Route: 048

REACTIONS (10)
  - Blood cholesterol increased [Unknown]
  - Abnormal behaviour [Unknown]
  - Euphoric mood [Unknown]
  - Insomnia [Not Recovered/Not Resolved]
  - Headache [Unknown]
  - Weight increased [Unknown]
  - Hot flush [Not Recovered/Not Resolved]
  - Anger [Unknown]
  - Mood swings [Unknown]
  - Drug ineffective [Not Recovered/Not Resolved]
